FAERS Safety Report 19879155 (Version 1)
Quarter: 2021Q3

REPORT INFORMATION
  Report Type: Spontaneous
  Country: US (occurrence: US)
  Receive Date: 20210924
  Receipt Date: 20210924
  Transmission Date: 20211014
  Serious: No
  Sender: FDA-Public Use
  Company Number: US-AJANTA PHARMA USA INC.-2118765

PATIENT
  Age: 68 Year

DRUGS (1)
  1. CHOLESTYRAMINE (ANDA 211119) [Suspect]
     Active Substance: CHOLESTYRAMINE
     Route: 048

REACTIONS (9)
  - Retching [Unknown]
  - Nausea [Unknown]
  - Incorrect dose administered [Unknown]
  - Intentional underdose [Unknown]
  - Therapeutic product effect decreased [Unknown]
  - Product taste abnormal [Unknown]
  - Product physical consistency issue [Unknown]
  - Product use complaint [Unknown]
  - Product deposit [Unknown]

NARRATIVE: CASE EVENT DATE: 202107
